FAERS Safety Report 5200209-3 (Version None)
Quarter: 2006Q4

REPORT INFORMATION
  Report Type: 
  Country: None (occurrence: None)
  Receive Date: 20061016
  Receipt Date: 20060712
  Transmission Date: 20070319
  Serious: No
  Sender: FDA-Public Use
  Company Number: 2006SP002680

PATIENT
  Age: 56 Year
  Sex: Male
  Weight: 97.5234 kg

DRUGS (7)
  1. LUNESTA [Suspect]
     Indication: SLEEP DISORDER DUE TO A GENERAL MEDICAL CONDITION
     Dosage: 3 MG;HS;ORAL
     Route: 048
     Dates: start: 20060601
  2. DICLOFENAC SODIUM [Concomitant]
  3. DESOXYN [Concomitant]
  4. PROVIGIL [Concomitant]
  5. TADALAFIL [Concomitant]
  6. EDEX [Concomitant]
  7. CAVERJECT [Concomitant]

REACTIONS (2)
  - DRUG INEFFECTIVE [None]
  - MIDDLE INSOMNIA [None]
